FAERS Safety Report 7277923-1 (Version None)
Quarter: 2011Q1

REPORT INFORMATION
  Report Type: 
  Country: None (occurrence: None)
  Receive Date: 20110207
  Receipt Date: 20110131
  Transmission Date: 20110831
  Serious: Yes (Death, Hospitalization)
  Sender: FDA-Public Use
  Company Number: BE-ROCHE-755624

PATIENT
  Sex: Female
  Weight: 70 kg

DRUGS (6)
  1. RESPERIDON [Concomitant]
     Indication: AUTISM
     Route: 048
  2. ALPRAZOLAM [Concomitant]
     Indication: AUTISM
     Route: 048
  3. TAXOTERE [Suspect]
     Indication: BREAST CANCER
     Dosage: DOSE: NP.
     Route: 042
     Dates: start: 20100610, end: 20100922
  4. CYCLOPHOSPHAMIDE [Suspect]
     Indication: BREAST CANCER
     Dosage: DOSE: NP.
     Route: 042
     Dates: start: 20100610, end: 20100922
  5. HERCEPTIN [Suspect]
     Indication: BREAST CANCER
     Dosage: DOSE: NP.
     Route: 042
     Dates: start: 20100610, end: 20110105
  6. QUESTRAN [Concomitant]

REACTIONS (1)
  - ORGANISING PNEUMONIA [None]
